FAERS Safety Report 22070009 (Version 1)
Quarter: 2023Q1

REPORT INFORMATION
  Report Type: Spontaneous
  Country: US (occurrence: US)
  Receive Date: 20230307
  Receipt Date: 20230307
  Transmission Date: 20230417
  Serious: No
  Sender: FDA-Public Use
  Company Number: US-AMNEAL PHARMACEUTICALS-2022-AMRX-01510

PATIENT
  Sex: Female
  Weight: 72.562 kg

DRUGS (2)
  1. RYTARY [Suspect]
     Active Substance: CARBIDOPA\LEVODOPA
     Indication: Parkinson^s disease
     Dosage: 2 CAPSULES, 4 /DAY
     Route: 048
     Dates: start: 202202, end: 202202
  2. RYTARY [Suspect]
     Active Substance: CARBIDOPA\LEVODOPA
     Dosage: 61.25/245 MG, TAKE 2 CAPSULES BY MOUTH 4 TIMES DAILY
     Route: 048
     Dates: start: 20230123

REACTIONS (5)
  - Drug ineffective [Recovered/Resolved]
  - Tremor [Recovered/Resolved]
  - Depression [Recovered/Resolved]
  - Anxiety [Recovered/Resolved]
  - Condition aggravated [Unknown]
